FAERS Safety Report 22235810 (Version 1)
Quarter: 2023Q2

REPORT INFORMATION
  Report Type: Spontaneous
  Country: US (occurrence: US)
  Receive Date: 20230420
  Receipt Date: 20230420
  Transmission Date: 20230722
  Serious: No
  Sender: FDA-Public Use
  Company Number: US-Covis Pharma GmbH-2023COV00942

PATIENT
  Sex: Female
  Weight: 58.05 kg

DRUGS (8)
  1. RILUZOLE [Suspect]
     Active Substance: RILUZOLE
     Indication: Product used for unknown indication
     Route: 065
  2. RADICAVA [Suspect]
     Active Substance: EDARAVONE
     Indication: Amyotrophic lateral sclerosis
     Dosage: QD FOR 14 DAYS OF 14 THEN 14 OFF; 105 MILLIGRAMS
     Route: 048
     Dates: start: 20230111
  3. CALCIUM 600 + D3 PLUS MINERALS [Concomitant]
     Indication: Product used for unknown indication
  4. GABAPENTIN [Concomitant]
     Active Substance: GABAPENTIN
     Indication: Product used for unknown indication
  5. LISINOPRIL [Concomitant]
     Active Substance: LISINOPRIL
     Indication: Product used for unknown indication
  6. B12 ACTIVE [Concomitant]
     Indication: Product used for unknown indication
  7. TOPROL XL [Concomitant]
     Active Substance: METOPROLOL SUCCINATE
     Indication: Product used for unknown indication
  8. SERTRALINE HYDROCHLORIDE [Concomitant]
     Active Substance: SERTRALINE HYDROCHLORIDE
     Indication: Product used for unknown indication

REACTIONS (1)
  - Nausea [Not Recovered/Not Resolved]
